FAERS Safety Report 21839998 (Version 1)
Quarter: 2023Q1

REPORT INFORMATION
  Report Type: Spontaneous
  Country: JP (occurrence: JP)
  Receive Date: 20230110
  Receipt Date: 20230110
  Transmission Date: 20230418
  Serious: Yes (Other)
  Sender: FDA-Public Use
  Company Number: JP-BRISTOL-MYERS SQUIBB COMPANY-2022-142588

PATIENT
  Age: 75 Year
  Sex: Male

DRUGS (1)
  1. HYDROXYUREA [Suspect]
     Active Substance: HYDROXYUREA
     Indication: Polycythaemia vera
     Dosage: 140MG OF DASATINIB WAS ADDITIONALLY ADMINISTERED FROM NOVEMBER 4.

REACTIONS (2)
  - Cerebral infarction [Unknown]
  - Subarachnoid haemorrhage [Unknown]
